FAERS Safety Report 18667466 (Version 2)
Quarter: 2021Q1

REPORT INFORMATION
  Report Type: Spontaneous
  Country: HK (occurrence: HK)
  Receive Date: 20201228
  Receipt Date: 20210106
  Transmission Date: 20210419
  Serious: Yes (Hospitalization)
  Sender: FDA-Public Use
  Company Number: HK-TEVA-2020-HK-1862989

PATIENT
  Age: 59 Year
  Sex: Male

DRUGS (2)
  1. PREDNISOLONE. [Suspect]
     Active Substance: PREDNISOLONE
     Indication: PEMPHIGUS
     Dosage: 5 MILLIGRAM DAILY;
     Route: 065
  2. MYCOPHENOLIC ACID. [Suspect]
     Active Substance: MYCOPHENOLIC ACID
     Indication: PEMPHIGUS
     Dosage: 360 MILLIGRAM DAILY;
     Route: 065

REACTIONS (4)
  - Epstein Barr virus positive mucocutaneous ulcer [Recovered/Resolved]
  - Osteonecrosis [Recovered/Resolved]
  - Tooth injury [Unknown]
  - Bone sequestrum [Recovered/Resolved]
